FAERS Safety Report 8579580-0 (Version None)
Quarter: 2012Q3

REPORT INFORMATION
  Report Type: 
  Country: None (occurrence: None)
  Receive Date: 20120808
  Receipt Date: 20120801
  Transmission Date: 20120928
  Serious: Yes (Other)
  Sender: FDA-Public Use
  Company Number: US-TEVA-344337USA

PATIENT
  Sex: Female
  Weight: 77.18 kg

DRUGS (5)
  1. PARAGARD T 380A [Suspect]
     Indication: CONTRACEPTION
     Route: 015
     Dates: start: 20110920, end: 20120601
  2. OXYCODONE HCL [Concomitant]
     Indication: PAIN
  3. OXYCONTIN [Concomitant]
     Indication: PAIN
  4. COUMADIN [Concomitant]
     Indication: THROMBOSIS
  5. LOVENOX [Concomitant]
     Indication: THROMBOSIS

REACTIONS (5)
  - OVARIAN CYST RUPTURED [None]
  - DEVICE EXPULSION [None]
  - ABDOMINAL PAIN [None]
  - MENSTRUATION IRREGULAR [None]
  - MEDICAL DEVICE COMPLICATION [None]
